FAERS Safety Report 9387298 (Version 1)
Quarter: 2013Q3

REPORT INFORMATION
  Report Type: Spontaneous
  Country: FR (occurrence: FR)
  Receive Date: 20130708
  Receipt Date: 20130708
  Transmission Date: 20140515
  Serious: Yes (Other)
  Sender: FDA-Public Use
  Company Number: FR-JNJFOC-20130618458

PATIENT
  Age: 21 Year
  Sex: Female

DRUGS (4)
  1. RISPERDALORO [Suspect]
     Indication: SCHIZOPHRENIA
     Route: 065
     Dates: start: 2004
  2. DEPAKOTE [Suspect]
     Indication: SCHIZOPHRENIA
     Route: 065
     Dates: start: 2009
  3. OLIGOSOL LI [Concomitant]
     Indication: PRODUCT USED FOR UNKNOWN INDICATION
     Route: 065
  4. BIOTAURINE [Concomitant]
     Indication: PRODUCT USED FOR UNKNOWN INDICATION
     Route: 065

REACTIONS (1)
  - Dermatitis bullous [Unknown]
